FAERS Safety Report 4750647-8 (Version None)
Quarter: 2005Q3

REPORT INFORMATION
  Report Type: 
  Country: None (occurrence: None)
  Receive Date: 20050823
  Receipt Date: 20050817
  Transmission Date: 20060218
  Serious: Yes (Hospitalization)
  Sender: FDA-Public Use
  Company Number: PHNR2005AU01271

PATIENT
  Age: 14 Year
  Sex: Male
  Weight: 58 kg

DRUGS (1)
  1. FAMVIR [Suspect]
     Indication: HERPES ZOSTER
     Route: 048
     Dates: start: 20041003, end: 20041010

REACTIONS (6)
  - ERYTHEMA MULTIFORME [None]
  - LIP ULCERATION [None]
  - MOUTH ULCERATION [None]
  - SKIN LESION [None]
  - STEVENS-JOHNSON SYNDROME [None]
  - SWELLING FACE [None]
